FAERS Safety Report 17204915 (Version 1)
Quarter: 2019Q4

REPORT INFORMATION
  Report Type: Spontaneous
  Country: CN (occurrence: CN)
  Receive Date: 20191227
  Receipt Date: 20191227
  Transmission Date: 20200122
  Serious: Yes (Hospitalization)
  Sender: FDA-Public Use
  Company Number: CN-BAXTER-2019BAX026188

PATIENT
  Age: 18 Year
  Sex: Male
  Weight: 52.5 kg

DRUGS (6)
  1. GELOFEN [Concomitant]
     Indication: PROPHYLAXIS
     Dosage: NEEDLE
     Route: 065
     Dates: start: 20191113
  2. HOLOXAN [Suspect]
     Active Substance: IFOSFAMIDE
     Indication: OSTEOSARCOMA
     Dosage: IFOSFAMIDE INJECTION + 0.9% SODIUM CHLORIDE INJECTION (NS) 500 ML
     Route: 041
     Dates: start: 20191110, end: 20191112
  3. HOLOXAN [Suspect]
     Active Substance: IFOSFAMIDE
     Dosage: DOSE RE-INTRODUCED, IFOSFAMIDE INJECTION + 0.9% SODIUM CHLORIDE INJECTION (NS)
     Route: 041
  4. 0.9% SODIUM CHLORIDE INJECTION [Suspect]
     Active Substance: SODIUM CHLORIDE
     Indication: MEDICATION DILUTION
     Dosage: IFOSFAMIDE INJECTION 4.2 G + 0.9% SODIUM CHLORIDE INJECTION (NS)
     Route: 041
     Dates: start: 20191110, end: 20191112
  5. HOLOXAN [Suspect]
     Active Substance: IFOSFAMIDE
     Dosage: IFOSFAMIDE INJECTION + 0.9% SODIUM CHLORIDE INJECTION (NS) 500 ML
     Route: 041
     Dates: start: 20191115, end: 20191116
  6. 0.9% SODIUM CHLORIDE INJECTION [Suspect]
     Active Substance: SODIUM CHLORIDE
     Dosage: DOSE RE-INTRODUCED, IFOSFAMIDE INJECTION + 0.9% SODIUM CHLORIDE INJECTION (NS)
     Route: 041

REACTIONS (1)
  - Bone marrow failure [Recovering/Resolving]

NARRATIVE: CASE EVENT DATE: 20191117
